FAERS Safety Report 8502553-0 (Version None)
Quarter: 2012Q3

REPORT INFORMATION
  Report Type: 
  Country: None (occurrence: None)
  Receive Date: 20120711
  Receipt Date: 20120629
  Transmission Date: 20120928
  Serious: Yes (Hospitalization)
  Sender: FDA-Public Use
  Company Number: US-ELI_LILLY_AND_COMPANY-US201204010099

PATIENT
  Sex: Female

DRUGS (29)
  1. LAMICTAL [Concomitant]
     Dosage: 100 MG, EACH MORNING
  2. METOPROLOL SUCCINATE [Concomitant]
     Dosage: 25 MG, BID
  3. VITAMIN E [Concomitant]
  4. MULTI-VITAMIN [Concomitant]
  5. COLACE [Concomitant]
     Dosage: 200 MG, UNK
  6. ZYPREXA [Suspect]
     Dosage: 10 MG, TID
  7. ZYPREXA [Suspect]
     Dosage: 5 MG, EACH MORNING
  8. ZYPREXA [Suspect]
     Dosage: 5 MG, EACH EVENING
  9. VITAMIN D [Concomitant]
  10. LISINOPRIL [Concomitant]
     Dosage: 40 MG, BID
  11. MAGNESIUM OXIDE [Concomitant]
     Dosage: 400 MG, BID
  12. IRON [Concomitant]
     Dosage: 1 DF, QD
  13. REMERON [Concomitant]
     Dosage: 15 MG, UNK
  14. ASPIRIN [Concomitant]
     Dosage: 325 MG, UNK
  15. ZYPREXA [Suspect]
     Dosage: 5 MG, TID
  16. CALCIUM CARBONATE [Concomitant]
     Dosage: 1 DF, BID
  17. NIFEDIPINE [Concomitant]
     Dosage: 90 MG, QD
  18. VITAMIN B COMPLEX CAP [Concomitant]
  19. GLIPIZIDE [Concomitant]
     Dosage: 1 DF, QD
  20. EFFEXOR XR [Concomitant]
     Dosage: 75 MG, BID
  21. SYNTHROID [Concomitant]
     Dosage: 175 UG, UNK
  22. LOSARTAN POTASSIUM [Concomitant]
     Dosage: 50 MG, BID
  23. VESICARE [Concomitant]
  24. OSTEO BI-FLEX [Concomitant]
     Dosage: 1 DF, BID
  25. METFORMIN HCL [Concomitant]
     Dosage: 500 MG, BID
  26. LECITHIN [Concomitant]
     Dosage: 500 MG, UNK
  27. LAMICTAL [Concomitant]
     Dosage: 200 MG, EACH EVENING
  28. ZYPREXA [Suspect]
     Indication: BIPOLAR DISORDER
     Dosage: 10 MG, BID
     Route: 048
  29. FISH OIL [Concomitant]

REACTIONS (13)
  - DIABETES MELLITUS [None]
  - OVERDOSE [None]
  - POLLAKIURIA [None]
  - FATIGUE [None]
  - SLEEP DISORDER [None]
  - HALLUCINATION [None]
  - EXCESSIVE EYE BLINKING [None]
  - DYSPHAGIA [None]
  - URINE OUTPUT DECREASED [None]
  - DYSKINESIA [None]
  - NAUSEA [None]
  - EXTRAPYRAMIDAL DISORDER [None]
  - ANXIETY [None]
